FAERS Safety Report 8939609 (Version 1)
Quarter: 2012Q4

REPORT INFORMATION
  Report Type: 
  Country: CN (occurrence: CN)
  Receive Date: 20121130
  Receipt Date: 20121130
  Transmission Date: 20130627
  Serious: Yes (Other)
  Sender: FDA-Public Use
  Company Number: PHHY2012CN108019

PATIENT
  Age: 48 Year
  Sex: Male

DRUGS (1)
  1. TEGRETOL [Suspect]
     Indication: EPILEPSY
     Dosage: 0.2 g, UNK
     Route: 048
     Dates: start: 20090302, end: 20090315

REACTIONS (10)
  - Dermatitis exfoliative [None]
  - Corneal exfoliation [Recovered/Resolved with Sequelae]
  - Mouth ulceration [Recovered/Resolved with Sequelae]
  - Pyrexia [Recovered/Resolved with Sequelae]
  - Skin exfoliation [Recovered/Resolved with Sequelae]
  - Oral mucosal exfoliation [Recovered/Resolved with Sequelae]
  - Skin injury [Recovered/Resolved with Sequelae]
  - Pain [Recovered/Resolved with Sequelae]
  - Anuria [Recovered/Resolved with Sequelae]
  - Blister [Recovered/Resolved with Sequelae]
